FAERS Safety Report 17706428 (Version 3)
Quarter: 2020Q2

REPORT INFORMATION
  Report Type: Spontaneous
  Country: NL (occurrence: NL)
  Receive Date: 20200424
  Receipt Date: 20200511
  Transmission Date: 20200714
  Serious: Yes (Other)
  Sender: FDA-Public Use
  Company Number: NL-PFIZER INC-2020162482

PATIENT
  Sex: Female

DRUGS (9)
  1. NIFEDIPINE. [Concomitant]
     Active Substance: NIFEDIPINE
     Dosage: UNK
  2. NIFEDIPINE. [Suspect]
     Active Substance: NIFEDIPINE
     Dosage: UNK
  3. PANTOZOL [Suspect]
     Active Substance: PANTOPRAZOLE SODIUM
     Dosage: 40 MG, 2X/DAY
     Dates: start: 2008
  4. ESOMEPRAZOLE MAGNESIUM. [Suspect]
     Active Substance: ESOMEPRAZOLE MAGNESIUM
     Dosage: 20 MG, 2X/DAY
     Dates: start: 2014
  5. SILDENAFIL CITRATE. [Suspect]
     Active Substance: SILDENAFIL CITRATE
     Dosage: UNK
     Dates: start: 2014
  6. LEVOCETIRIZINE DIHYDROCHLORIDE. [Concomitant]
     Active Substance: LEVOCETIRIZINE DIHYDROCHLORIDE
     Indication: SEASONAL ALLERGY
     Dosage: UNK
  7. NEXIUM [Suspect]
     Active Substance: ESOMEPRAZOLE MAGNESIUM
     Dosage: 40 MG, 2X/DAY
     Dates: start: 2009
  8. ASCAL [CARBASALATE CALCIUM] [Suspect]
     Active Substance: CARBASPIRIN CALCIUM
     Dosage: UNK
     Dates: start: 2005
  9. CARBASALAATCALCIUM CARDIO [Suspect]
     Active Substance: CARBASPIRIN CALCIUM
     Dosage: UNK

REACTIONS (27)
  - Myalgia [Unknown]
  - Abdominal distension [Unknown]
  - Gastrointestinal disorder [Unknown]
  - Platelet count decreased [Unknown]
  - Bleeding time prolonged [Unknown]
  - Oedema peripheral [Unknown]
  - Dyspepsia [Unknown]
  - Nasal inflammation [Unknown]
  - Flatulence [Unknown]
  - Fatigue [Unknown]
  - Palpitations [Unknown]
  - Muscle spasms [Unknown]
  - Dry mouth [Unknown]
  - Gastrointestinal haemorrhage [Unknown]
  - Pain in extremity [Unknown]
  - Constipation [Unknown]
  - Blood sodium decreased [Unknown]
  - Insomnia [Unknown]
  - Nasal congestion [Unknown]
  - Anaemia [Unknown]
  - Restlessness [Unknown]
  - Gastrooesophageal reflux disease [Unknown]
  - Eructation [Unknown]
  - Skin infection [Unknown]
  - Paraesthesia [Unknown]
  - Bezoar [Unknown]
  - Fluid retention [Unknown]
